FAERS Safety Report 4562123-6 (Version None)
Quarter: 2005Q1

REPORT INFORMATION
  Report Type: 
  Country: None (occurrence: None)
  Receive Date: 20050121
  Receipt Date: 20050118
  Transmission Date: 20050727
  Serious: Yes (Hospitalization, Other)
  Sender: FDA-Public Use
  Company Number: 200420815BWH

PATIENT
  Age: 57 Year
  Sex: Female

DRUGS (3)
  1. AVELOX [Suspect]
     Indication: PNEUMONIA
     Dosage: ORAL
     Route: 048
     Dates: start: 20040525, end: 20040609
  2. CEFTRIAXONE [Suspect]
     Dates: start: 20040525, end: 20040531
  3. FLUCONAZOLE [Suspect]
     Dates: start: 20040527, end: 20040601

REACTIONS (4)
  - BLOOD CREATININE INCREASED [None]
  - HAEMOLYSIS [None]
  - MICROANGIOPATHY [None]
  - THROMBOCYTOPENIA [None]
